FAERS Safety Report 8466021 (Version 4)
Quarter: 2012Q4

REPORT INFORMATION
  Report Type: 
  Country: US (occurrence: US)
  Receive Date: 20120229
  Receipt Date: 20121109
  Transmission Date: 20130627
  Serious: Yes (Hospitalization, Other)
  Sender: FDA-Public Use
  Company Number: PHEH2010US03856

PATIENT
  Age: 6 Year
  Sex: Male

DRUGS (6)
  1. TEGRETOL [Suspect]
     Indication: CONVULSION
  2. TYLENOL [Concomitant]
  3. PREDNISONE [Concomitant]
  4. RESTASIS [Concomitant]
  5. CELLUVISC [Concomitant]
  6. ALBUTEROL [Concomitant]

REACTIONS (99)
  - Toxic epidermal necrolysis [Unknown]
  - Stevens-Johnson syndrome [Unknown]
  - Rash [Unknown]
  - Pruritus [Unknown]
  - Skin discolouration [Unknown]
  - Skin exfoliation [Unknown]
  - Alopecia [Unknown]
  - Nail disorder [Unknown]
  - Pigmentation disorder [Unknown]
  - Urticaria [Unknown]
  - Swelling [Unknown]
  - Skin lesion [Unknown]
  - Skin burning sensation [Unknown]
  - Mucous membrane disorder [Unknown]
  - Scar [Unknown]
  - Blindness [Unknown]
  - Internal injury [Unknown]
  - Hypersensitivity [Unknown]
  - Oral disorder [Unknown]
  - Pyrexia [Unknown]
  - Measles [Unknown]
  - Tachycardia [Unknown]
  - Rash maculo-papular [Unknown]
  - Necrotising fasciitis [Unknown]
  - Epidermolysis bullosa [Unknown]
  - Lymphadenopathy [Unknown]
  - Mouth ulceration [Unknown]
  - Hyperglycaemia [Unknown]
  - Hypernatraemia [Unknown]
  - Sepsis [Unknown]
  - Dysphagia [Unknown]
  - Hypertension [Unknown]
  - Respiratory failure [Unknown]
  - Staphylococcal sepsis [Unknown]
  - Asthenia [Unknown]
  - Cheilitis [Unknown]
  - Excoriation [Unknown]
  - Entropion [Unknown]
  - Eye irritation [Unknown]
  - Conjunctivitis [Unknown]
  - Trichiasis [Unknown]
  - Contusion [Unknown]
  - Otitis media [Unknown]
  - Rhinorrhoea [Unknown]
  - Symblepharon [Unknown]
  - Skin papilloma [Unknown]
  - Obesity [Unknown]
  - Phimosis [Unknown]
  - Otitis externa [Unknown]
  - Ear pain [Unknown]
  - Abdominal pain [Unknown]
  - Eustachian tube dysfunction [Unknown]
  - Flushing [Unknown]
  - Acrochordon [Unknown]
  - Joint injury [Unknown]
  - Back injury [Unknown]
  - Pharyngeal erythema [Unknown]
  - Nasopharyngitis [Unknown]
  - Distichiasis [Unknown]
  - Epistaxis [Unknown]
  - Toothache [Unknown]
  - Gingival pain [Unknown]
  - Swelling face [Unknown]
  - Tooth infection [Unknown]
  - Tooth abscess [Unknown]
  - Dermal cyst [Unknown]
  - Conjunctival hyperaemia [Unknown]
  - Rubivirus test positive [Unknown]
  - Hepatitis B surface antibody positive [Unknown]
  - Periorbital cellulitis [Unknown]
  - Dysuria [Unknown]
  - Pollakiuria [Unknown]
  - Pain in extremity [Unknown]
  - Oropharyngeal pain [Unknown]
  - Sneezing [Unknown]
  - Neck pain [Unknown]
  - Myalgia [Unknown]
  - Chills [Unknown]
  - Nausea [Unknown]
  - Headache [Unknown]
  - Hypotension [Unknown]
  - Xanthoma [Unknown]
  - Blister [Unknown]
  - Erythema [Unknown]
  - Periorbital oedema [Unknown]
  - Blood glucose increased [Unknown]
  - Keratopathy [Unknown]
  - Eye infection staphylococcal [Unknown]
  - Alpha haemolytic streptococcal infection [Unknown]
  - Erythema multiforme [Unknown]
  - Rhonchi [Unknown]
  - Bronchospasm [Unknown]
  - Cough [Unknown]
  - Rhinitis [Unknown]
  - Ligament sprain [Unknown]
  - Oedema mucosal [Unknown]
  - Metaplasia [Unknown]
  - Facial bones fracture [Unknown]
  - Pain in jaw [Unknown]
